FAERS Safety Report 10426254 (Version 1)
Quarter: 2014Q3

REPORT INFORMATION
  Report Type: Spontaneous
  Country: US (occurrence: None)
  Receive Date: 20140902
  Receipt Date: 20140902
  Transmission Date: 20150326
  Serious: Yes (Other)
  Sender: FDA-Public Use
  Company Number: None

PATIENT
  Age: 62 Year
  Sex: Male
  Weight: 104.33 kg

DRUGS (8)
  1. POTASSIUM CITRATE. [Suspect]
     Active Substance: POTASSIUM CITRATE
     Indication: PROPHYLAXIS
     Dosage: QTY 90 TAKE 3 TABLETS BY MOUTH EVERY DAY BY MOUTH
     Route: 048
     Dates: start: 20140729, end: 20140730
  2. POTASSIUM CITRATE. [Suspect]
     Active Substance: POTASSIUM CITRATE
     Indication: NEPHROLITHIASIS
     Dosage: QTY 90 TAKE 3 TABLETS BY MOUTH EVERY DAY BY MOUTH
     Route: 048
     Dates: start: 20140729, end: 20140730
  3. VITAMIN D-3 [Concomitant]
  4. METFORMIN [Concomitant]
     Active Substance: METFORMIN HYDROCHLORIDE
  5. GLYBURIDE. [Concomitant]
     Active Substance: GLYBURIDE
  6. SIO-NIACIN [Concomitant]
  7. SIMVASTATIN. [Concomitant]
     Active Substance: SIMVASTATIN
  8. PIOGLITAZONE [Concomitant]
     Active Substance: PIOGLITAZONE

REACTIONS (3)
  - Blood glucose decreased [None]
  - Tremor [None]
  - Prostatic pain [None]

NARRATIVE: CASE EVENT DATE: 20140730
